FAERS Safety Report 23159906 (Version 1)
Quarter: 2023Q4

REPORT INFORMATION
  Report Type: Spontaneous
  Country: US (occurrence: US)
  Receive Date: 20231108
  Receipt Date: 20231108
  Transmission Date: 20240109
  Serious: Yes (Other)
  Sender: FDA-Public Use
  Company Number: US-TEVA-2023-US-2942261

PATIENT
  Age: 53 Year
  Sex: Male

DRUGS (3)
  1. FLUCONAZOLE [Suspect]
     Active Substance: FLUCONAZOLE
     Indication: Isosporiasis
     Route: 065
  2. AMPHOTERICIN B [Concomitant]
     Active Substance: AMPHOTERICIN B
     Indication: Isosporiasis
     Route: 065
  3. RIFABUTIN [Concomitant]
     Active Substance: RIFABUTIN
     Indication: Pulmonary tuberculosis
     Route: 065

REACTIONS (1)
  - Drug-induced liver injury [Unknown]
